FAERS Safety Report 20894204 (Version 2)
Quarter: 2022Q2

REPORT INFORMATION
  Report Type: Spontaneous
  Country: CZ (occurrence: CZ)
  Receive Date: 20220531
  Receipt Date: 20220617
  Transmission Date: 20220721
  Serious: Yes (Other)
  Sender: FDA-Public Use
  Company Number: CZ-BAYER-2022A072997

PATIENT
  Age: 29 Year
  Weight: 88 kg

DRUGS (1)
  1. JIVI [Suspect]
     Active Substance: DAMOCTOCOG ALFA PEGOL
     Indication: Factor VIII deficiency
     Dosage: INTERMITTENT EVERY 4 AND EVERY 5 DAYS
     Dates: start: 20210215

REACTIONS (1)
  - Ankle fracture [None]
